FAERS Safety Report 17081079 (Version 2)
Quarter: 2020Q1

REPORT INFORMATION
  Report Type: Report from Study
  Country: None (occurrence: US)
  Receive Date: 20191127
  Receipt Date: 20200114
  Transmission Date: 20200409
  Serious: Yes (Hospitalization, Other)
  Sender: FDA-Public Use
  Company Number: US-ABBVIE-19K-163-3170121-00

PATIENT
  Sex: Male
  Weight: .36 kg

DRUGS (1)
  1. HUMIRA [Suspect]
     Active Substance: ADALIMUMAB
     Indication: MATERNAL EXPOSURE TIMING UNSPECIFIED
     Route: 064

REACTIONS (7)
  - Mass [Not Recovered/Not Resolved]
  - Localised infection [Recovering/Resolving]
  - Respiratory arrest [Recovering/Resolving]
  - Inguinal hernia [Recovering/Resolving]
  - Shoulder dystocia [Recovering/Resolving]
  - Foetal exposure during pregnancy [Unknown]
  - Foetal gastrointestinal tract imaging abnormal [Unknown]

NARRATIVE: CASE EVENT DATE: 2019
